FAERS Safety Report 23695224 (Version 1)
Quarter: 2024Q2

REPORT INFORMATION
  Report Type: Spontaneous
  Country: FR (occurrence: FR)
  Receive Date: 20240402
  Receipt Date: 20240402
  Transmission Date: 20240716
  Serious: Yes (Hospitalization)
  Sender: FDA-Public Use
  Company Number: None

PATIENT
  Age: 63 Year
  Sex: Female
  Weight: 85 kg

DRUGS (7)
  1. ATORVASTATIN [Suspect]
     Active Substance: ATORVASTATIN
     Indication: Dyslipidaemia
     Dates: start: 20240111, end: 20240118
  2. EZETIMIBE [Suspect]
     Active Substance: EZETIMIBE
     Indication: Dyslipidaemia
     Dates: start: 20240111, end: 20240118
  3. ACETAMINOPHEN [Suspect]
     Active Substance: ACETAMINOPHEN
     Indication: Pain
     Dates: start: 20240111, end: 20240119
  4. PANTOPRAZOLE [Suspect]
     Active Substance: PANTOPRAZOLE
     Indication: Gastritis prophylaxis
     Dates: start: 20240116, end: 20240118
  5. BETADINE [Suspect]
     Active Substance: POVIDONE-IODINE
     Indication: Surgery
     Dosage: SCRUB 4 PERCENT, SOLUTION FOR CUTANEOUS APPLICATION, APPLYING DURING ANGIOPLASTY
     Dates: start: 20240116, end: 20240116
  6. TICAGRELOR [Suspect]
     Active Substance: TICAGRELOR
     Indication: Aortic stent insertion
     Dates: start: 20240111
  7. KARDEGIC [Suspect]
     Active Substance: ASPIRIN DL-LYSINE
     Indication: Aortic stent insertion
     Dates: start: 20240111

REACTIONS (1)
  - Rash maculo-papular [Recovering/Resolving]

NARRATIVE: CASE EVENT DATE: 20240117
